FAERS Safety Report 5243220-9 (Version None)
Quarter: 2007Q1

REPORT INFORMATION
  Report Type: 
  Country: None (occurrence: None)
  Receive Date: 20070221
  Receipt Date: 20070209
  Transmission Date: 20070707
  Serious: Yes (Other)
  Sender: FDA-Public Use
  Company Number: FR-PFIZER INC-2007002382

PATIENT
  Sex: Female
  Weight: 56 kg

DRUGS (4)
  1. RELPAX [Suspect]
     Indication: MIGRAINE
     Route: 048
  2. GINKGO BILOBA EXTRACT [Concomitant]
  3. ATORVASTATIN [Concomitant]
  4. PROPRANOLOL HYDROCHLORIDE [Concomitant]
     Route: 048

REACTIONS (2)
  - HEADACHE [None]
  - INTENTIONAL DRUG MISUSE [None]
